FAERS Safety Report 15013940 (Version 1)
Quarter: 2018Q2

REPORT INFORMATION
  Report Type: Spontaneous
  Country: BE (occurrence: BE)
  Receive Date: 20180614
  Receipt Date: 20180614
  Transmission Date: 20180711
  Serious: Yes (Death)
  Sender: FDA-Public Use
  Company Number: BE-ROCHE-2137313

PATIENT
  Age: 52 Year
  Sex: Female

DRUGS (1)
  1. TECENTRIQ [Suspect]
     Active Substance: ATEZOLIZUMAB
     Indication: VULVAL CANCER
     Route: 065
     Dates: start: 20180419

REACTIONS (3)
  - Intentional product use issue [Fatal]
  - Septic shock [Fatal]
  - Off label use [Fatal]

NARRATIVE: CASE EVENT DATE: 20180518
